FAERS Safety Report 8403159-4 (Version None)
Quarter: 2012Q2

REPORT INFORMATION
  Report Type: 
  Country: None (occurrence: None)
  Receive Date: 20120529
  Receipt Date: 20120517
  Transmission Date: 20120825
  Serious: Yes (Hospitalization)
  Sender: FDA-Public Use
  Company Number: UCM201204-000040

PATIENT
  Age: 22 Year
  Sex: Male

DRUGS (3)
  1. MOXONIDINE [Suspect]
     Dosage: 0.4 MG
  2. BISOPROLOL FUMARATE [Suspect]
     Indication: HYPERTENSION
     Dosage: 5 MG ONCE DAILY
  3. VERAPAMIL/TRANDOLAPRIL [Suspect]
     Indication: HYPERTENSION
     Dosage: 240 MG/4 MG

REACTIONS (17)
  - VISION BLURRED [None]
  - ATRIOVENTRICULAR BLOCK FIRST DEGREE [None]
  - BUNDLE BRANCH BLOCK RIGHT [None]
  - BRADYARRHYTHMIA [None]
  - ASTHENIA [None]
  - DIZZINESS [None]
  - ELECTROCARDIOGRAM REPOLARISATION ABNORMALITY [None]
  - ELECTROCARDIOGRAM QRS COMPLEX PROLONGED [None]
  - VERTIGO [None]
  - BLOOD PRESSURE FLUCTUATION [None]
  - DRUG INTERACTION [None]
  - CONDUCTION DISORDER [None]
  - VENTRICULAR EXTRASYSTOLES [None]
  - SINUS ARREST [None]
  - SYNCOPE [None]
  - BLOOD PRESSURE INADEQUATELY CONTROLLED [None]
  - MEDICATION ERROR [None]
